FAERS Safety Report 5118724-X (Version None)
Quarter: 2006Q4

REPORT INFORMATION
  Report Type: 
  Country: None (occurrence: None)
  Receive Date: 20061002
  Receipt Date: 20060801
  Transmission Date: 20070319
  Serious: Yes (Hospitalization)
  Sender: FDA-Public Use
  Company Number: GB-ROCHE-458876

PATIENT
  Age: 35 Year
  Sex: Male
  Weight: 86 kg

DRUGS (3)
  1. ACCUTANE [Suspect]
     Indication: ACNE
     Route: 048
     Dates: start: 20060331, end: 20060518
  2. MIRTAZAPINE [Concomitant]
     Indication: ANTIDEPRESSANT THERAPY
  3. ARIPIPRAZOLE [Concomitant]
     Indication: ANTIDEPRESSANT THERAPY

REACTIONS (1)
  - SCHIZOPHRENIA, PARANOID TYPE [None]
